FAERS Safety Report 10384308 (Version 4)
Quarter: 2014Q3

REPORT INFORMATION
  Report Type: Spontaneous
  Country: US (occurrence: None)
  Receive Date: 20140812
  Receipt Date: 20140919
  Transmission Date: 20150326
  Serious: Yes (Disabling)
  Sender: FDA-Public Use
  Company Number: NL01PV14.36757

PATIENT
  Age: 93 Year
  Sex: Male
  Weight: 77.1 kg

DRUGS (2)
  1. UNKNOWN (TAMSULOSIN) CAPSULE [Suspect]
     Active Substance: TAMSULOSIN
     Indication: BENIGN PROSTATIC HYPERPLASIA
     Route: 048
     Dates: start: 20140720, end: 20140724
  2. ALLOPURINOL. [Concomitant]
     Active Substance: ALLOPURINOL

REACTIONS (9)
  - Rash erythematous [None]
  - Joint range of motion decreased [None]
  - Rash generalised [None]
  - Upper extremity mass [None]
  - Back pain [None]
  - Rash pruritic [None]
  - Discomfort [None]
  - Myalgia [None]
  - Peripheral swelling [None]

NARRATIVE: CASE EVENT DATE: 20140724
